FAERS Safety Report 6633657-5 (Version None)
Quarter: 2010Q1

REPORT INFORMATION
  Report Type: 
  Country: None (occurrence: None)
  Receive Date: 20100312
  Receipt Date: 20100308
  Transmission Date: 20100710
  Serious: Yes (Other)
  Sender: FDA-Public Use
  Company Number: US-AMGEN-ICO260518

PATIENT
  Sex: Male

DRUGS (16)
  1. DARBEPOETIN ALFA [Suspect]
     Indication: RENAL FAILURE CHRONIC
     Route: 058
     Dates: start: 20061117
  2. COUMADIN [Concomitant]
     Route: 048
  3. LACTULOSE [Concomitant]
     Route: 048
  4. GLYBURIDE [Concomitant]
     Route: 048
  5. HYDRALAZINE HCL [Concomitant]
     Route: 048
  6. NEURONTIN [Concomitant]
     Route: 048
  7. POTASSIUM [Concomitant]
     Route: 048
  8. RESTORIL [Concomitant]
     Route: 048
  9. SIMVASTATIN [Concomitant]
     Route: 048
  10. TYLENOL-500 [Concomitant]
     Route: 048
  11. ULTRACET [Concomitant]
     Route: 048
  12. VASOTEC [Concomitant]
     Route: 048
  13. VITAMIN B COMPLEX CAP [Concomitant]
     Route: 048
  14. VITAMIN E [Concomitant]
  15. VICODIN [Concomitant]
     Route: 048
  16. DEMADEX [Concomitant]
     Route: 048

REACTIONS (3)
  - ASCITES [None]
  - PORTAL HYPERTENSION [None]
  - SPLENOMEGALY [None]
